FAERS Safety Report 7209251-4 (Version None)
Quarter: 2011Q1

REPORT INFORMATION
  Report Type: 
  Country: None (occurrence: None)
  Receive Date: 20110104
  Receipt Date: 20101229
  Transmission Date: 20110831
  Serious: Yes (Hospitalization)
  Sender: FDA-Public Use
  Company Number: A0902036A

PATIENT
  Age: 61 Year
  Sex: Male

DRUGS (13)
  1. BENAZEPRIL [Concomitant]
  2. ZOCOR [Concomitant]
  3. COUMADIN [Concomitant]
  4. METFORMIN [Concomitant]
  5. ATENOLOL [Concomitant]
  6. SPIRONOLACTONE [Concomitant]
  7. MULTI-VITAMIN [Concomitant]
  8. AVANDIA [Suspect]
     Route: 048
     Dates: start: 20060101, end: 20061001
  9. FUROSEMIDE [Concomitant]
  10. POTASSIUM [Concomitant]
  11. ASPIRIN [Concomitant]
  12. GLYBURIDE [Concomitant]
  13. CALCIUM [Concomitant]

REACTIONS (10)
  - HYPOGLYCAEMIA [None]
  - DYSPNOEA [None]
  - DEMENTIA [None]
  - WEIGHT INCREASED [None]
  - OEDEMA PERIPHERAL [None]
  - STRESS [None]
  - HEPATIC CIRRHOSIS [None]
  - OVERDOSE [None]
  - HYPOGLYCAEMIC COMA [None]
  - ASCITES [None]
